FAERS Safety Report 17671623 (Version 3)
Quarter: 2021Q1

REPORT INFORMATION
  Report Type: Spontaneous
  Country: US (occurrence: US)
  Receive Date: 20200415
  Receipt Date: 20210107
  Transmission Date: 20210419
  Serious: No
  Sender: FDA-Public Use
  Company Number: US-CYCLE PHARMACEUTICALS LTD-2020-CYC-000005

PATIENT
  Sex: Female

DRUGS (4)
  1. NITYR [Suspect]
     Active Substance: NITISINONE
     Indication: TYROSINAEMIA
     Dosage: 2 MG, BID
     Route: 048
  2. NITYR [Suspect]
     Active Substance: NITISINONE
     Indication: LIVER DISORDER
     Dosage: 2 MG, BID
     Route: 048
  3. NITYR [Suspect]
     Active Substance: NITISINONE
     Indication: LIVER DISORDER
     Dosage: 10 MG, BID
     Route: 048
  4. NITYR [Suspect]
     Active Substance: NITISINONE
     Indication: TYROSINAEMIA
     Dosage: 10 MG, BID
     Route: 048

REACTIONS (6)
  - Hot flush [Recovered/Resolved]
  - COVID-19 [Unknown]
  - Affect lability [Recovered/Resolved]
  - Vomiting [Recovered/Resolved]
  - Crying [Recovered/Resolved]
  - Nausea [Recovered/Resolved]
